FAERS Safety Report 5692399-3 (Version None)
Quarter: 2008Q2

REPORT INFORMATION
  Report Type: 
  Country: None (occurrence: None)
  Receive Date: 20080402
  Receipt Date: 20070522
  Transmission Date: 20081010
  Serious: No
  Sender: FDA-Public Use
  Company Number: US-BAYER-US-2007-018730

PATIENT
  Age: 56 Year
  Sex: Female
  Weight: 79 kg

DRUGS (4)
  1. LEUKINE [Suspect]
     Indication: NEUTROPENIA
     Route: 058
     Dates: start: 20060101
  2. DARVOCET-N [Concomitant]
  3. PROCRIT [Concomitant]
  4. PROTON PUMP INHIBITORS [Concomitant]

REACTIONS (2)
  - FLUSHING [None]
  - TACHYCARDIA [None]
